FAERS Safety Report 8909862 (Version 3)
Quarter: 2013Q1

REPORT INFORMATION
  Report Type: Spontaneous
  Country: BR (occurrence: BR)
  Receive Date: 20121115
  Receipt Date: 20130205
  Transmission Date: 20140127
  Serious: Yes (Other)
  Sender: FDA-Public Use
  Company Number: BR-PFIZER INC-2012252940

PATIENT
  Age: 52 Year
  Sex: Male
  Weight: 67 kg

DRUGS (2)
  1. CHAMPIX [Suspect]
     Indication: SMOKING CESSATION THERAPY
     Dosage: 2 TABLETS (UNSPECIFIED DOSE), DAILY
     Route: 048
     Dates: start: 201208, end: 20121005
  2. CHAMPIX [Suspect]
     Dosage: 2 TABLETS (UNSPECIFIED DOSE), DAILY
     Route: 048
     Dates: start: 20121008, end: 201211

REACTIONS (4)
  - Melaena [Unknown]
  - Duodenitis [Unknown]
  - Anxiety [Recovered/Resolved]
  - Tremor [Recovered/Resolved]
